FAERS Safety Report 6915620-X (Version None)
Quarter: 2010Q3

REPORT INFORMATION
  Report Type: 
  Country: None (occurrence: None)
  Receive Date: 20100809
  Receipt Date: 20100803
  Transmission Date: 20110219
  Serious: Yes (Hospitalization)
  Sender: FDA-Public Use
  Company Number: US-BRISTOL-MYERS SQUIBB COMPANY-15223811

PATIENT
  Age: 4 Year
  Sex: Female
  Weight: 15 kg

DRUGS (3)
  1. SPRYCEL [Suspect]
     Indication: B PRECURSOR TYPE ACUTE LEUKAEMIA
     Dosage: LAST DOSE ON 12JUL2010.NO OF COURSES:3
     Route: 048
     Dates: start: 20100702
  2. CYTARABINE [Suspect]
     Indication: B PRECURSOR TYPE ACUTE LEUKAEMIA
     Dosage: LAST DOSE ON 05JUL2010.NO OF COURSES:3
     Route: 042
     Dates: start: 20100702
  3. METHOTREXATE [Suspect]
     Indication: B PRECURSOR TYPE ACUTE LEUKAEMIA
     Dosage: LAST DOSE ON 03JUL2010.NO OF COURSES:3
     Route: 048
     Dates: start: 20100702

REACTIONS (2)
  - DEHYDRATION [None]
  - GASTROINTESTINAL HAEMORRHAGE [None]
